FAERS Safety Report 9145587 (Version 1)
Quarter: 2013Q1

REPORT INFORMATION
  Report Type: Spontaneous
  Country: US (occurrence: US)
  Receive Date: 20130307
  Receipt Date: 20130307
  Transmission Date: 20140127
  Serious: No
  Sender: FDA-Public Use
  Company Number: US-PFIZER INC-2013077284

PATIENT
  Age: 76 Year
  Sex: Female
  Weight: 66.67 kg

DRUGS (3)
  1. ALAVERT [Suspect]
     Indication: SEASONAL ALLERGY
     Dosage: UNK, ALTERNATE DAY (EVERY OTHER DAY)
     Dates: start: 2013
  2. METFORMIN [Concomitant]
     Indication: DIABETES MELLITUS
     Dosage: 500MG TWO TABLETS, 2X/DAY
  3. LISINOPRIL [Concomitant]
     Indication: DIABETES MELLITUS
     Dosage: 10 MG, DAILY

REACTIONS (2)
  - Dizziness [Not Recovered/Not Resolved]
  - Vision blurred [Recovered/Resolved]
